FAERS Safety Report 18330750 (Version 2)
Quarter: 2020Q4

REPORT INFORMATION
  Report Type: Report from Study
  Country: CN (occurrence: CN)
  Receive Date: 20200930
  Receipt Date: 20201110
  Transmission Date: 20210113
  Serious: Yes (Other)
  Sender: FDA-Public Use
  Company Number: CN-TEVA-2020-CN-1832845

PATIENT
  Age: 29 Year
  Sex: Female

DRUGS (11)
  1. ANTITHYMOCYTE GLOBULIN [Suspect]
     Active Substance: THYMOCYTE IMMUNE GLOBULIN NOS
     Indication: IMMUNOSUPPRESSANT DRUG THERAPY
     Dosage: ADMINISTERED 2 DAYS PRIOR TO TRANSPLANTATION
     Route: 065
  2. CYCLOSPORINE A [Suspect]
     Active Substance: CYCLOSPORINE
     Indication: PROPHYLAXIS AGAINST GRAFT VERSUS HOST DISEASE
     Dosage: 4 MG/KG DAILY; ADMINISTERED SINCE 10 DAYS PRIOR TO TRANSPLANTATION
     Route: 065
  3. ANTITHYMOCYTE GLOBULIN [Suspect]
     Active Substance: THYMOCYTE IMMUNE GLOBULIN NOS
     Indication: IMMUNOSUPPRESSANT DRUG THERAPY
     Dosage: 1.5 MG/KG DAILY; ADMINISTERED 5 DAYS PRIOR TO TRANSPLANTATION
     Route: 065
  4. METHOTREXATE. [Suspect]
     Active Substance: METHOTREXATE
     Indication: PROPHYLAXIS AGAINST GRAFT VERSUS HOST DISEASE
     Dosage: ADMINISTERED 3, 6 AND 11 DAYS POST TRANSPLANTATION
     Route: 050
  5. CYCLOPHOSPHAMIDE. [Suspect]
     Active Substance: CYCLOPHOSPHAMIDE
     Indication: IMMUNOSUPPRESSANT DRUG THERAPY
     Dosage: 50 MG/KG DAILY; ADMINISTERED 3-4 DAYS PRIOR TO TRANSPLANTATION
     Route: 065
  6. MYCOPHENOLATE MOFETIL. [Suspect]
     Active Substance: MYCOPHENOLATE MOFETIL
     Indication: PROPHYLAXIS AGAINST GRAFT VERSUS HOST DISEASE
     Dosage: 1000 MILLIGRAM DAILY; ADMINISTERED SINCE 10 DAYS PRIOR TO TRANSPLANTATION
     Route: 065
  7. BUSULFAN. [Suspect]
     Active Substance: BUSULFAN
     Indication: IMMUNOSUPPRESSANT DRUG THERAPY
     Dosage: 3.2 MG/KG DAILY; ADMINISTERED 10-8 DAYS PRIOR TO TRANSPLANTATION
  8. CYTARABINE. [Suspect]
     Active Substance: CYTARABINE
     Indication: IMMUNOSUPPRESSANT DRUG THERAPY
     Dosage: DOSE: 4 G/M2/DAY; ADMINISTERED 5-6 DAYS PRIOR TO TRANSPLANTATION
     Route: 065
  9. ANTITHYMOCYTE GLOBULIN [Suspect]
     Active Substance: THYMOCYTE IMMUNE GLOBULIN NOS
     Indication: IMMUNOSUPPRESSANT DRUG THERAPY
     Dosage: ADMINISTERED 3-4 DAYS PRIOR TO TRANSPLANTATION
     Route: 065
  10. CARMUSTINE. [Suspect]
     Active Substance: CARMUSTINE
     Indication: IMMUNOSUPPRESSANT DRUG THERAPY
     Dosage: 250 MILLIGRAM DAILY; ADMINISTERED 7 DAYS PRIOR TO TRANSPLANTATION
     Route: 065
  11. METHOTREXATE. [Suspect]
     Active Substance: METHOTREXATE
     Indication: PROPHYLAXIS AGAINST GRAFT VERSUS HOST DISEASE
     Dosage: ADMINISTERED 1 DAY POST TRANSPLANTATION
     Route: 050

REACTIONS (4)
  - Cystitis haemorrhagic [Recovering/Resolving]
  - Cytomegalovirus infection [Recovering/Resolving]
  - Epstein-Barr virus infection [Recovering/Resolving]
  - Pneumonia [Recovering/Resolving]
